FAERS Safety Report 21375545 (Version 4)
Quarter: 2022Q4

REPORT INFORMATION
  Report Type: Spontaneous
  Country: ZA (occurrence: None)
  Receive Date: 20220926
  Receipt Date: 20221123
  Transmission Date: 20230113
  Serious: Yes (Hospitalization)
  Sender: FDA-Public Use
  Company Number: ZA-Merck Healthcare KGaA-9352364

PATIENT
  Age: 38 Year
  Sex: Female

DRUGS (4)
  1. GLUCOPHAGE XR [Suspect]
     Active Substance: METFORMIN HYDROCHLORIDE
     Indication: Insulin resistance
     Route: 048
  2. DIENOGEST\ESTRADIOL VALERATE [Concomitant]
     Active Substance: DIENOGEST\ESTRADIOL VALERATE
     Indication: Contraception
  3. NEXIUM [Concomitant]
     Active Substance: ESOMEPRAZOLE MAGNESIUM
     Indication: Product used for unknown indication
  4. SPATONE LIQUID IRON [Concomitant]
     Indication: Product used for unknown indication

REACTIONS (5)
  - Mouth ulceration [Unknown]
  - Tongue ulceration [Unknown]
  - Lip swelling [Unknown]
  - Lip haemorrhage [Unknown]
  - Hypophagia [Unknown]
